FAERS Safety Report 6552945-4 (Version None)
Quarter: 2010Q1

REPORT INFORMATION
  Report Type: 
  Country: None (occurrence: None)
  Receive Date: 20100122
  Receipt Date: 20100114
  Transmission Date: 20100710
  Serious: Yes (Death, Life-Threatening, Hospitalization, Other)
  Sender: FDA-Public Use
  Company Number: 2009JP005719

PATIENT
  Age: 56 Year
  Sex: Female
  Weight: 44.6 kg

DRUGS (29)
  1. TACROLIMUS [Suspect]
     Indication: LUPUS NEPHRITIS
     Dosage: 1 MG, /D, ORAL, 1 MG, UID/QD, ORAL
     Route: 048
     Dates: start: 20070222, end: 20080204
  2. TACROLIMUS [Suspect]
     Indication: LUPUS NEPHRITIS
     Dosage: 1 MG, /D, ORAL, 1 MG, UID/QD, ORAL
     Route: 048
     Dates: start: 20080408, end: 20080415
  3. MEDROL [Suspect]
     Dosage: 6 MG, TID, ORAL
     Route: 048
     Dates: start: 20080408, end: 20080420
  4. SOL-MELCORT (METHYLPREDNISOLONE SODIUM SUCCINATE) INJECTION [Suspect]
     Dosage: 125 MG, UID/QD, IV NOS ; 125 MG, BID, IV NOS ; 10 MG, BID, IV NOS
     Route: 042
     Dates: start: 20080421, end: 20080421
  5. SOL-MELCORT (METHYLPREDNISOLONE SODIUM SUCCINATE) INJECTION [Suspect]
     Dosage: 125 MG, UID/QD, IV NOS ; 125 MG, BID, IV NOS ; 10 MG, BID, IV NOS
     Route: 042
     Dates: start: 20080422, end: 20080423
  6. SOL-MELCORT (METHYLPREDNISOLONE SODIUM SUCCINATE) INJECTION [Suspect]
     Dosage: 125 MG, UID/QD, IV NOS ; 125 MG, BID, IV NOS ; 10 MG, BID, IV NOS
     Route: 042
     Dates: start: 20080424, end: 20080506
  7. OMEPRAZOLE [Suspect]
     Dosage: 20 MG, /D
     Dates: start: 20080205, end: 20080209
  8. PREDNISOLONE [Suspect]
     Indication: LUPUS NEPHRITIS
     Dosage: SEE IMAGE
     Route: 048
     Dates: end: 20080204
  9. PREDNISOLONE [Suspect]
     Indication: LUPUS NEPHRITIS
     Dosage: SEE IMAGE
     Route: 048
     Dates: start: 20080222, end: 20080228
  10. PREDNISOLONE [Suspect]
     Indication: LUPUS NEPHRITIS
     Dosage: SEE IMAGE
     Route: 048
     Dates: start: 20080301, end: 20080307
  11. PREDNISOLONE [Suspect]
     Indication: LUPUS NEPHRITIS
     Dosage: SEE IMAGE
     Route: 048
     Dates: start: 20080308, end: 20080314
  12. PREDNISOLONE [Suspect]
     Indication: LUPUS NEPHRITIS
     Dosage: SEE IMAGE
     Route: 048
     Dates: start: 20080315, end: 20080321
  13. PREDNISOLONE [Suspect]
     Indication: LUPUS NEPHRITIS
     Dosage: SEE IMAGE
     Route: 048
     Dates: start: 20080322, end: 20080328
  14. PREDNISOLONE [Suspect]
     Indication: LUPUS NEPHRITIS
     Dosage: SEE IMAGE
     Route: 048
     Dates: start: 20080329, end: 20080407
  15. METHYLPREDNISOLONE [Concomitant]
  16. PREDNISOLONE [Concomitant]
  17. CYCLOPHOSPHAMIDE [Concomitant]
  18. SIMVASTATIN [Concomitant]
  19. ALLOPURINOL [Concomitant]
  20. LASIX [Concomitant]
  21. BACTRIM [Concomitant]
  22. FOSAMAC (ALENDRONATE SODIUM) [Concomitant]
  23. NORVASC [Concomitant]
  24. FAMOTIDINE [Concomitant]
  25. SELBEX (TEPRENONE) [Concomitant]
  26. ARGAMATE (CALCIUM POLYSTYRENE SULFONATE) [Concomitant]
  27. DIOVAN [Concomitant]
  28. LEVOFLOXACIN [Concomitant]
  29. LANSOPRAZOLE [Concomitant]

REACTIONS (13)
  - ALTERED STATE OF CONSCIOUSNESS [None]
  - ASPERGILLOSIS [None]
  - CARDIAC FAILURE [None]
  - CELLULITIS [None]
  - CHOLECYSTITIS [None]
  - CYTOMEGALOVIRUS GASTRITIS [None]
  - GALLBLADDER PERFORATION [None]
  - GASTROINTESTINAL HAEMORRHAGE [None]
  - HISTIOCYTOSIS HAEMATOPHAGIC [None]
  - LIVER DISORDER [None]
  - PANCYTOPENIA [None]
  - PERITONITIS [None]
  - PULMONARY ALVEOLAR HAEMORRHAGE [None]
